FAERS Safety Report 7443642-1 (Version None)
Quarter: 2011Q2

REPORT INFORMATION
  Report Type: 
  Country: None (occurrence: None)
  Receive Date: 20110428
  Receipt Date: 20110426
  Transmission Date: 20111010
  Serious: Yes (Other)
  Sender: FDA-Public Use
  Company Number: GB-PFIZER INC-2010170277

PATIENT
  Age: 53 Year
  Sex: Female
  Weight: 62 kg

DRUGS (2)
  1. AROMASIN [Suspect]
     Indication: BREAST CANCER METASTATIC
     Dosage: 25 MG, 1X/DAY
     Route: 048
     Dates: start: 20100429, end: 20101201
  2. NIFEDIPINE [Concomitant]
     Indication: BLOOD PRESSURE
     Dosage: 10 MG, 1X/DAY, LONG TERM
     Route: 048

REACTIONS (3)
  - CYSTITIS NONINFECTIVE [None]
  - URINARY BLADDER HAEMORRHAGE [None]
  - URETHRAL HAEMORRHAGE [None]
